FAERS Safety Report 4661183-1 (Version None)
Quarter: 2005Q2

REPORT INFORMATION
  Report Type: 
  Country: None (occurrence: None)
  Receive Date: 20050513
  Receipt Date: 20050429
  Transmission Date: 20051028
  Serious: Yes (Other)
  Sender: FDA-Public Use
  Company Number: ES-JNJFOC-20050402759

PATIENT
  Age: 24 Year
  Sex: Female

DRUGS (4)
  1. REMICADE [Suspect]
     Route: 042
  2. REMICADE [Suspect]
     Indication: CROHN'S DISEASE
     Dosage: 5 MG/KG
     Route: 042
  3. CLAVERSAL [Concomitant]
     Indication: CROHN'S DISEASE
  4. IMUREL [Concomitant]
     Dates: start: 19980101, end: 20050101

REACTIONS (1)
  - LUPUS-LIKE SYNDROME [None]
